FAERS Safety Report 4417589-9 (Version None)
Quarter: 2004Q2

REPORT INFORMATION
  Report Type: 
  Country: None (occurrence: None)
  Receive Date: 20040625
  Receipt Date: 20040428
  Transmission Date: 20050107
  Serious: No
  Sender: FDA-Public Use
  Company Number: 206164

PATIENT
  Age: 65 Year
  Sex: Male
  Weight: 96.1 kg

DRUGS (11)
  1. AVASTIN [Suspect]
     Indication: COLORECTAL CANCER METASTATIC
     Dosage: 500 MG, Q2W , INTRAVENOUS
     Route: 042
     Dates: start: 20040405
  2. OXALIPLATIN(OXALIPLATIN) [Suspect]
     Indication: COLORECTAL CANCER METASTATIC
     Dosage: 200 MG, Q2W, INTRAVENOUS
     Route: 042
     Dates: start: 20040405
  3. FLUOROURACIL [Concomitant]
  4. LEUCOVORIN CALCIUM [Concomitant]
  5. GRANISETRON (GRANISETRON HYDROCHLORIDE) [Concomitant]
  6. DESAMETHASONE (DEXAMETHASONE) [Concomitant]
  7. SIMVASTATIN [Concomitant]
  8. OMEPRAZOLE [Concomitant]
  9. METOPROLOL TARTRATE [Concomitant]
  10. WARFARIN SODIUM [Concomitant]
  11. GLUCOSAMINE [Concomitant]

REACTIONS (1)
  - VISUAL DISTURBANCE [None]
